FAERS Safety Report 9645161 (Version 1)
Quarter: 2013Q4

REPORT INFORMATION
  Report Type: Spontaneous
  Country: None (occurrence: None)
  Receive Date: 20131023
  Receipt Date: 20131023
  Transmission Date: 20140711
  Serious: Yes (Other)
  Sender: FDA-Public Use
  Company Number: None

PATIENT
  Age: 63 Year
  Sex: Female
  Weight: 42.64 kg

DRUGS (3)
  1. CYPROHEPTADINE [Suspect]
     Indication: DECREASED APPETITE
     Route: 048
     Dates: start: 20130618, end: 20130706
  2. OMEPRAZOLE (MYLAN) [Suspect]
     Indication: GASTROOESOPHAGEAL REFLUX DISEASE
     Route: 048
     Dates: start: 20130618, end: 20130706
  3. OMEPRAZOLE (MYLAN) [Suspect]
     Indication: DECREASED APPETITE
     Route: 048
     Dates: start: 20130618, end: 20130706

REACTIONS (4)
  - Neutropenia [None]
  - White blood cell count decreased [None]
  - Alanine aminotransferase increased [None]
  - Aspartate aminotransferase increased [None]
